FAERS Safety Report 17325358 (Version 5)
Quarter: 2020Q3

REPORT INFORMATION
  Report Type: Spontaneous
  Country: US (occurrence: US)
  Receive Date: 20200127
  Receipt Date: 20200821
  Transmission Date: 20201102
  Serious: Yes (Hospitalization, Other)
  Sender: FDA-Public Use
  Company Number: US-PFIZER INC-2019432480

PATIENT
  Age: 83 Year
  Sex: Female
  Weight: 81.65 kg

DRUGS (9)
  1. TOVIAZ [Suspect]
     Active Substance: FESOTERODINE FUMARATE
     Indication: URINARY INCONTINENCE
     Dosage: 8 MG, UNK
     Dates: start: 1999
  2. TOVIAZ [Suspect]
     Active Substance: FESOTERODINE FUMARATE
     Dosage: 8 MG, DAILY
     Route: 048
  3. ACTEMRA [Concomitant]
     Active Substance: TOCILIZUMAB
     Dosage: UNK (UNKNOWN DOSE BY INFUSION EVERY OTHER WEEK)
     Dates: start: 2019
  4. RITUXAN [Concomitant]
     Active Substance: RITUXIMAB
     Indication: RHEUMATOID ARTHRITIS
     Dosage: UNK, MONTHLY, [INFUSION EVERY MONTH]
  5. RITUXAN [Concomitant]
     Active Substance: RITUXIMAB
     Indication: OSTEOARTHRITIS
  6. TOVIAZ [Suspect]
     Active Substance: FESOTERODINE FUMARATE
     Dosage: 20 MG, UNK
     Dates: start: 201701
  7. ACTEMRA [Concomitant]
     Active Substance: TOCILIZUMAB
     Indication: RHEUMATOID ARTHRITIS
     Dosage: UNK
     Dates: start: 2017
  8. TOVIAZ [Suspect]
     Active Substance: FESOTERODINE FUMARATE
     Indication: BLADDER DISCOMFORT
     Dosage: 8 MG, 1X/DAY
     Route: 048
     Dates: start: 2017
  9. ACTEMRA [Concomitant]
     Active Substance: TOCILIZUMAB
     Dosage: UNK
     Dates: start: 1999

REACTIONS (10)
  - Dyspnoea [Recovering/Resolving]
  - Tremor [Unknown]
  - Dizziness [Recovered/Resolved]
  - Asthenia [Unknown]
  - Heart rate decreased [Unknown]
  - Somnolence [Unknown]
  - Cold-stimulus headache [Unknown]
  - Pneumonia [Unknown]
  - Dysphonia [Unknown]
  - Fatigue [Unknown]
